FAERS Safety Report 6334465-5 (Version None)
Quarter: 2009Q3

REPORT INFORMATION
  Report Type: 
  Country: None (occurrence: None)
  Receive Date: 20090827
  Receipt Date: 20090814
  Transmission Date: 20100115
  Serious: Yes (Other)
  Sender: FDA-Public Use
  Company Number: 2009AL005349

PATIENT
  Sex: Female
  Weight: 62.1428 kg

DRUGS (22)
  1. DIGOXIN [Suspect]
     Dosage: 0.125 MG, DAILY, PO
     Route: 048
  2. ASPIRIN [Concomitant]
  3. LIPITOR [Concomitant]
  4. DILANTIN [Concomitant]
  5. PRINIVIL [Concomitant]
  6. KLONOPIN [Concomitant]
  7. COUMADIN [Concomitant]
  8. GLYBURIDE [Concomitant]
  9. TEMAZEPAM [Concomitant]
  10. PLENDIL [Concomitant]
  11. CLARINEX [Concomitant]
  12. DIABETIC TUSSIN [Concomitant]
  13. NORVASC [Concomitant]
  14. TOPROL-XL [Concomitant]
  15. AMBIEN [Concomitant]
  16. CADUET [Concomitant]
  17. PROPOXYPHENE HCL CAP [Concomitant]
  18. LISINOPRIL [Concomitant]
  19. PRECOSE [Concomitant]
  20. FUROSEMIDE [Concomitant]
  21. MELOXICAM [Concomitant]
  22. ALDACTONE [Concomitant]

REACTIONS (17)
  - ASTHENIA [None]
  - ATRIAL FIBRILLATION [None]
  - BRONCHITIS [None]
  - CONVULSION [None]
  - DIABETES MELLITUS [None]
  - DYSPHONIA [None]
  - FATIGUE [None]
  - HYPERLIPIDAEMIA [None]
  - HYPERTENSION [None]
  - IMPLANTABLE DEFIBRILLATOR MALFUNCTION [None]
  - ISCHAEMIC CARDIOMYOPATHY [None]
  - MITRAL VALVE INCOMPETENCE [None]
  - OROPHARYNGEAL PAIN [None]
  - PALPITATIONS [None]
  - SENSATION OF HEAVINESS [None]
  - SINUSITIS [None]
  - WEIGHT DECREASED [None]
